FAERS Safety Report 23345177 (Version 1)
Quarter: 2023Q4

REPORT INFORMATION
  Report Type: Spontaneous
  Country: NL (occurrence: NL)
  Receive Date: 20231228
  Receipt Date: 20231228
  Transmission Date: 20240110
  Serious: Yes (Hospitalization)
  Sender: FDA-Public Use
  Company Number: NL-BAXTER-2023BAX029695

PATIENT
  Age: 75 Year
  Sex: Male
  Weight: 93 kg

DRUGS (27)
  1. CYCLOPHOSPHAMIDE [Suspect]
     Active Substance: CYCLOPHOSPHAMIDE
     Indication: Diffuse large B-cell lymphoma
     Dosage: 1500 MG, EVERY 3 WEEKS
     Route: 042
     Dates: start: 20230609, end: 20230712
  2. DOXORUBICIN [Suspect]
     Active Substance: DOXORUBICIN
     Indication: Diffuse large B-cell lymphoma
     Dosage: 100 MG, EVERY 3 WEEKS
     Route: 042
     Dates: start: 20230609, end: 20230712
  3. EPCORITAMAB [Suspect]
     Active Substance: EPCORITAMAB
     Dosage: 0.16 MG PRIMING DOSE, C1, D1, TOTAL
     Route: 058
     Dates: start: 20230609, end: 20230609
  4. EPCORITAMAB [Suspect]
     Active Substance: EPCORITAMAB
     Dosage: 0.8 MG INTERMEDIATE DOSE, C1, D8, TOTAL
     Route: 058
     Dates: start: 20230616, end: 20230616
  5. EPCORITAMAB [Suspect]
     Active Substance: EPCORITAMAB
     Indication: Diffuse large B-cell lymphoma
     Dosage: 48 MG FULL DOSE, C1, D15, TOTAL
     Route: 058
     Dates: start: 20230626, end: 20230711
  6. PREDNISONE [Suspect]
     Active Substance: PREDNISONE
     Indication: Steroid therapy
     Dosage: 100 MG, DAILY, C1-6, DAY 1-5
     Route: 048
     Dates: start: 20230609, end: 20230715
  7. RITUXIMAB [Suspect]
     Active Substance: RITUXIMAB
     Indication: Product used for unknown indication
     Dosage: 780 MG, EVERY 3 WEEKS
     Route: 042
     Dates: start: 20230609, end: 20230712
  8. VINCRISTINE [Suspect]
     Active Substance: VINCRISTINE
     Indication: Blood cholesterol
     Dosage: 48 MG FULL DOSE, C1, D15, TOTAL
     Route: 058
     Dates: start: 20230626, end: 20230711
  9. ABSTRAL [Concomitant]
     Active Substance: FENTANYL CITRATE
     Indication: Pain
     Dosage: 100-200 UG, AS NECESSARY ROUTE OF ADMIN (FREE TEXT): UNKNOWN ROUTE
     Route: 065
     Dates: start: 20230527
  10. Acenocoumarol CF [Concomitant]
     Indication: Stent placement
     Dosage: 1-2 MG, EVERY 1 DAY ROUTE OF ADMIN (FREE TEXT): UNKNOWN ROUTE
     Route: 065
  11. Acenocoumarol CF [Concomitant]
     Indication: Renal aneurysm
  12. APIXABAN [Concomitant]
     Active Substance: APIXABAN
     Indication: Anticoagulant therapy
     Dosage: 5 MG, EVERY 12 HOURS ROUTE OF ADMIN (FREE TEXT): UNKNOWN ROUTE
     Route: 065
     Dates: start: 20230626
  13. APIXABAN [Concomitant]
     Active Substance: APIXABAN
     Indication: Prosthesis implantation
  14. BISOPROLOL [Concomitant]
     Active Substance: BISOPROLOL\BISOPROLOL FUMARATE
     Indication: Arrhythmia
     Dosage: 2.5 MG, EVERY 24 HOURS ROUTE OF ADMIN (FREE TEXT): UNKNOWN ROUTE
     Route: 065
     Dates: start: 20230703
  15. SULFAMETHOXAZOLE\TRIMETHOPRIM [Concomitant]
     Active Substance: SULFAMETHOXAZOLE\TRIMETHOPRIM
     Indication: Antifungal prophylaxis
     Dosage: 480 MG, EVERY 24 HOURS ROUTE OF ADMIN (FREE TEXT): UNKNOWN ROUTE
     Route: 065
     Dates: start: 20230609
  16. SULFAMETHOXAZOLE\TRIMETHOPRIM [Concomitant]
     Active Substance: SULFAMETHOXAZOLE\TRIMETHOPRIM
     Indication: Steroid therapy
  17. DECADRON [Concomitant]
     Active Substance: DEXAMETHASONE
     Indication: Prophylaxis
     Dosage: 15 MG, EVERY 24 HOURS ROUTE OF ADMIN (FREE TEXT): UNKNOWN ROUTE
     Route: 065
     Dates: start: 20230616
  18. FENTANYL [Concomitant]
     Active Substance: FENTANYL\FENTANYL CITRATE
     Indication: Pain
     Dosage: 37.5 - 75 UG/DOSE, EVERY 3 DAYS ROUTE OF ADMIN (FREE TEXT): UNKNOWN ROUTE
     Route: 065
     Dates: start: 20230607
  19. POLYETHYLENE GLYCOLS [Concomitant]
     Active Substance: POLYETHYLENE GLYCOLS
     Indication: Constipation
     Dosage: 1 SACHET, EVERY 24 HOURS ROUTE OF ADMIN (FREE TEXT): UNKNOWN ROUTE
     Route: 065
     Dates: start: 20230421
  20. METFORMIN [Concomitant]
     Active Substance: METFORMIN HYDROCHLORIDE
     Indication: Diabetes mellitus
     Dosage: 500 MG, EVERY 12 HOURS ROUTE OF ADMIN (FREE TEXT): UNKNOWN ROUTE
     Route: 065
  21. METOCLOPRAMIDE [Concomitant]
     Active Substance: METOCLOPRAMIDE
     Indication: Prophylaxis of nausea and vomiting
     Dosage: 10 MG, AS NECESSARY ROUTE OF ADMIN (FREE TEXT): UNKNOWN ROUTE
     Route: 065
     Dates: start: 20230609
  22. PANTOZOL [Concomitant]
     Active Substance: PANTOPRAZOLE SODIUM
     Indication: Gastrointestinal disorder prophylaxis
     Dosage: 40 MG, EVERY 24 HOURS ROUTE OF ADMIN (FREE TEXT): UNKNOWN ROUTE
     Route: 065
     Dates: start: 20230531
  23. PANTOZOL [Concomitant]
     Active Substance: PANTOPRAZOLE SODIUM
     Indication: Steroid therapy
  24. ACETAMINOPHEN [Concomitant]
     Active Substance: ACETAMINOPHEN
     Indication: Product used for unknown indication
     Dosage: 1000 MG, EVERY 3 WEEKS ROUTE OF ADMIN (FREE TEXT): UNKNOWN ROUTE
     Route: 065
     Dates: start: 20230609
  25. PERINDOPRIL [Concomitant]
     Active Substance: PERINDOPRIL
     Indication: Hypertension
     Dosage: 4 MG, EVERY 24 HOURS ROUTE OF ADMIN (FREE TEXT): UNKNOWN ROUTE
     Route: 065
  26. SIMVASTATINE A [Concomitant]
     Indication: Blood cholesterol
     Dosage: 20 MG, EVERY 24 HOURS ROUTE OF ADMIN (FREE TEXT): UNKNOWN ROUTE
     Route: 065
  27. CLEMASTINE FUMARATE [Concomitant]
     Active Substance: CLEMASTINE FUMARATE
     Indication: Product used for unknown indication
     Dosage: 2 MG, EVERY 3 WEEKS ROUTE OF ADMIN (FREE TEXT): UNKNOWN ROUTE
     Route: 065
     Dates: start: 20230609

REACTIONS (2)
  - Cough [Recovered/Resolved]
  - Malaise [Recovered/Resolved]

NARRATIVE: CASE EVENT DATE: 20230811
